FAERS Safety Report 22891292 (Version 2)
Quarter: 2023Q4

REPORT INFORMATION
  Report Type: Spontaneous
  Country: US (occurrence: None)
  Receive Date: 20230901
  Receipt Date: 20231018
  Transmission Date: 20240110
  Serious: Yes (Other)
  Sender: FDA-Public Use
  Company Number: 2023A193913

PATIENT

DRUGS (1)
  1. FASENRA [Suspect]
     Active Substance: BENRALIZUMAB
     Route: 058

REACTIONS (17)
  - Thrombosis [Unknown]
  - Animal bite [Unknown]
  - Memory impairment [Unknown]
  - Anxiety [Unknown]
  - Vaccination site pain [Unknown]
  - Trigger toe [Unknown]
  - Therapeutic response unexpected [Unknown]
  - Immune system disorder [Unknown]
  - Nasopharyngitis [Unknown]
  - Dysphonia [Unknown]
  - Osteoarthritis [Unknown]
  - Phobia [Unknown]
  - Injection site discolouration [Unknown]
  - Haematoma [Unknown]
  - Pain in extremity [Unknown]
  - Bronchitis [Unknown]
  - Respiratory tract congestion [Unknown]
